FAERS Safety Report 24723210 (Version 1)
Quarter: 2024Q4

REPORT INFORMATION
  Report Type: Spontaneous
  Country: PL (occurrence: PL)
  Receive Date: 20241211
  Receipt Date: 20241211
  Transmission Date: 20250114
  Serious: Yes (Other)
  Sender: PFIZER
  Company Number: PL-PFIZER INC-PV202400158595

PATIENT
  Age: 53 Year
  Sex: Male

DRUGS (11)
  1. CYTARABINE [Suspect]
     Active Substance: CYTARABINE
     Indication: Acute myelomonocytic leukaemia
     Dosage: UNK, CYCLIC, (LOW DOSE)
  2. THIOGUANINE ANHYDROUS [Suspect]
     Active Substance: THIOGUANINE ANHYDROUS
     Indication: Acute myelomonocytic leukaemia
     Dosage: UNK, CYCLIC, (ONE COURSE)
  3. DAUNORUBICIN [Concomitant]
     Active Substance: DAUNORUBICIN
     Indication: Acute myelomonocytic leukaemia
  4. ETOPOSIDE [Concomitant]
     Active Substance: ETOPOSIDE
     Indication: Acute myelomonocytic leukaemia
  5. IVERMECTIN [Concomitant]
     Active Substance: IVERMECTIN
     Indication: Acute myelomonocytic leukaemia
     Dosage: UNK, (IDA REGIMEN)
  6. ALBENDAZOLE [Concomitant]
     Active Substance: ALBENDAZOLE
     Indication: Acute myelomonocytic leukaemia
     Dosage: UNK, (IDA REGIMEN)
  7. DIETHYLCARBAMAZINE [Concomitant]
     Active Substance: DIETHYLCARBAMAZINE
     Indication: Acute myelomonocytic leukaemia
     Dosage: UNK, (IDA REGIMEN)
  8. CYTARABINE [Concomitant]
     Active Substance: CYTARABINE
     Indication: Acute myelomonocytic leukaemia
     Dosage: UNK, (HAM REGIMEN)
  9. MITOXANTRONE [Concomitant]
     Active Substance: MITOXANTRONE HYDROCHLORIDE
     Indication: Acute myelomonocytic leukaemia
     Dosage: UNK, (HAM REGIMEN)
  10. SORAFENIB [Concomitant]
     Active Substance: SORAFENIB
     Indication: Acute myelomonocytic leukaemia
     Dosage: 400 MG, 2X/DAY
  11. SORAFENIB [Concomitant]
     Active Substance: SORAFENIB
     Dosage: 200 MG, 2X/DAY

REACTIONS (1)
  - Hepatotoxicity [Unknown]
